FAERS Safety Report 7814278-5 (Version None)
Quarter: 2011Q4

REPORT INFORMATION
  Report Type: 
  Country: None (occurrence: None)
  Receive Date: 20111014
  Receipt Date: 20111007
  Transmission Date: 20120403
  Serious: Yes (Other)
  Sender: FDA-Public Use
  Company Number: US-AMGEN-USASP2011051881

PATIENT
  Age: 50 Year
  Sex: Male

DRUGS (1)
  1. ENBREL [Suspect]
     Indication: RHEUMATOID ARTHRITIS
     Dosage: 50 MG, QWK
     Dates: start: 20110301

REACTIONS (8)
  - MOBILITY DECREASED [None]
  - SCRATCH [None]
  - VISUAL IMPAIRMENT [None]
  - EYE SWELLING [None]
  - RHINALGIA [None]
  - ACNE [None]
  - ARTHRALGIA [None]
  - NASAL OEDEMA [None]
